FAERS Safety Report 5050838-5 (Version None)
Quarter: 2006Q3

REPORT INFORMATION
  Report Type: 
  Country: None (occurrence: None)
  Receive Date: 20060710
  Receipt Date: 20060629
  Transmission Date: 20061208
  Serious: Yes (Hospitalization, Disabling)
  Sender: FDA-Public Use
  Company Number: 200612455GDS

PATIENT
  Age: 22 Year
  Sex: Female

DRUGS (4)
  1. AVELOX [Suspect]
     Indication: SINUSITIS
     Dosage: 400 MG, QD, ORAL
     Route: 048
     Dates: start: 20060511, end: 20060518
  2. CALCORT [Concomitant]
  3. SINGULAIR [Concomitant]
  4. ROCEPHIN [Concomitant]

REACTIONS (1)
  - ENCEPHALITIC INFECTION [None]
